FAERS Safety Report 18986634 (Version 4)
Quarter: 2021Q2

REPORT INFORMATION
  Report Type: Spontaneous
  Country: CN (occurrence: CN)
  Receive Date: 20210309
  Receipt Date: 20210413
  Transmission Date: 20210717
  Serious: Yes (Death, Life-Threatening, Hospitalization, Other)
  Sender: FDA-Public Use
  Company Number: CN-ASTRAZENECA-2021A102593

PATIENT
  Age: 65 Year
  Sex: Female
  Weight: 55 kg

DRUGS (2)
  1. AMINO ACID [Concomitant]
     Active Substance: AMINO ACIDS, SOURCE UNSPECIFIED
     Dates: start: 20210131
  2. TAGRISSO [Suspect]
     Active Substance: OSIMERTINIB
     Indication: LUNG ADENOCARCINOMA
     Dosage: ONCE DAILY
     Route: 048
     Dates: start: 20210206

REACTIONS (14)
  - Neoplasm malignant [Fatal]
  - Pleural effusion [Unknown]
  - Drug ineffective [Unknown]
  - Heart rate increased [Unknown]
  - Pneumonitis [Not Recovered/Not Resolved]
  - Lymphadenopathy [Recovered/Resolved]
  - Hypoxia [Unknown]
  - Coma [Unknown]
  - Cardiac failure [Unknown]
  - Pneumonia [Not Recovered/Not Resolved]
  - Joint swelling [Recovering/Resolving]
  - Pneumothorax [Unknown]
  - Pyrexia [Unknown]
  - Peripheral coldness [Unknown]

NARRATIVE: CASE EVENT DATE: 20210204
